FAERS Safety Report 5014223-4 (Version None)
Quarter: 2006Q2

REPORT INFORMATION
  Report Type: 
  Country: None (occurrence: None)
  Receive Date: 20060414
  Receipt Date: 20060215
  Transmission Date: 20061013
  Serious: No
  Sender: FDA-Public Use
  Company Number: 2006SP000820

PATIENT
  Age: 49 Year
  Sex: Female
  Weight: 86.1834 kg

DRUGS (1)
  1. LUNESTA [Suspect]
     Indication: PAIN
     Dosage: 3 MG;ORAL
     Route: 048
     Dates: start: 20051101

REACTIONS (1)
  - DYSGEUSIA [None]
